FAERS Safety Report 6700291-8 (Version None)
Quarter: 2010Q2

REPORT INFORMATION
  Report Type: 
  Country: None (occurrence: None)
  Receive Date: 20100428
  Receipt Date: 20100419
  Transmission Date: 20101027
  Serious: Yes (Hospitalization)
  Sender: FDA-Public Use
  Company Number: FR-CEPHALON-2010002260

PATIENT
  Sex: Male

DRUGS (2)
  1. ACTIQ [Suspect]
     Indication: NEURALGIA
     Route: 002
     Dates: end: 20090101
  2. DURAGESIC-100 [Suspect]
     Indication: NEURALGIA
     Route: 061
     Dates: end: 20090101

REACTIONS (1)
  - HYPERAESTHESIA [None]
